FAERS Safety Report 9333863 (Version 2)
Quarter: 2013Q4

REPORT INFORMATION
  Report Type: Spontaneous
  Country: US (occurrence: US)
  Receive Date: 20130606
  Receipt Date: 20131008
  Transmission Date: 20140711
  Serious: No
  Sender: FDA-Public Use
  Company Number: US-AMGEN-USASP2013005432

PATIENT
  Age: 82 Year
  Sex: Female

DRUGS (10)
  1. PROLIA [Suspect]
     Indication: PRODUCT USED FOR UNKNOWN INDICATION
     Dosage: UNK
     Route: 065
     Dates: start: 20130815
  2. ATENOLOL [Concomitant]
  3. ARMOUR THYROID [Concomitant]
  4. LUMIGAN RC [Concomitant]
  5. CALCIUM                            /00060701/ [Concomitant]
  6. MAGNESIUM [Concomitant]
  7. OMEPRAZOLE [Concomitant]
  8. VITAMIN D                          /00107901/ [Concomitant]
  9. FORTEO [Concomitant]
     Dosage: UNK
     Dates: start: 201302
  10. LICORICE                           /01125801/ [Concomitant]

REACTIONS (3)
  - Headache [Recovered/Resolved]
  - Oral pain [Recovered/Resolved]
  - Mastication disorder [Not Recovered/Not Resolved]
